FAERS Safety Report 5967614-9 (Version None)
Quarter: 2008Q4

REPORT INFORMATION
  Report Type: 
  Country: None (occurrence: None)
  Receive Date: 20081126
  Receipt Date: 20081114
  Transmission Date: 20090506
  Serious: No
  Sender: FDA-Public Use
  Company Number: PHBS2008JP05993

PATIENT
  Age: 29 Year
  Sex: Female
  Weight: 54.5 kg

DRUGS (17)
  1. NEORAL [Suspect]
     Indication: TAKAYASU'S ARTERITIS
     Dosage: 100 MG/DAY
     Route: 048
  2. PREDNISOLONE [Suspect]
     Indication: TAKAYASU'S ARTERITIS
     Dosage: 20 MG/DAY
  3. PREDNISOLONE [Suspect]
     Dosage: 50 MG/DAY
  4. PREDNISOLONE [Suspect]
     Dosage: 15 MG/DAY
  5. TETRAMIDE [Suspect]
     Indication: INSOMNIA
     Dosage: 10 MG/DAY
     Route: 048
  6. ABILIFY [Suspect]
     Dosage: 3 MG/DAY
  7. ABILIFY [Suspect]
     Dosage: 6 MG/DAY
  8. SERTRALINE [Concomitant]
     Indication: DEPRESSION
     Dosage: 100 MG/DAY
  9. PAXIL [Concomitant]
     Indication: DEPRESSION
     Dosage: 20 MG/DAY
     Route: 048
  10. PAXIL [Concomitant]
     Dosage: 30 MG/DAY
  11. ASPIRIN [Concomitant]
     Dosage: 100 MG/DAY
     Route: 048
  12. WARFARIN SODIUM [Concomitant]
     Dosage: 2.5 MG/DAY
     Route: 048
  13. PROCYLIN [Concomitant]
     Dosage: 60 MG/DAY
  14. FOSAMAX [Concomitant]
     Dosage: 5 MG/DAY
  15. FAMOTIDINE [Concomitant]
     Dosage: 20 MG/DAY
  16. ROHYPNOL [Concomitant]
     Indication: DEPRESSION
     Dosage: 4 MG/DAY
  17. LENDORMIN [Concomitant]
     Indication: DEPRESSION
     Dosage: 0.25 MG/DAY

REACTIONS (5)
  - AFFECTIVE DISORDER [None]
  - HYPERPHAGIA [None]
  - OBESITY [None]
  - TEARFULNESS [None]
  - WEIGHT INCREASED [None]
